FAERS Safety Report 8231231-0 (Version None)
Quarter: 2012Q1

REPORT INFORMATION
  Report Type: 
  Country: None (occurrence: None)
  Receive Date: 20120323
  Receipt Date: 20120309
  Transmission Date: 20120608
  Serious: Yes (Other)
  Sender: FDA-Public Use
  Company Number: RO-TEVA-328375ISR

PATIENT
  Sex: Male

DRUGS (3)
  1. ETOPOSIDE [Suspect]
     Indication: RESPIRATORY TRACT NEOPLASM
     Dosage: 200 MILLIGRAM;
     Route: 041
     Dates: start: 20120307, end: 20120307
  2. CARBOPLATIN [Concomitant]
     Dosage: 450 MILLIGRAM;
     Route: 042
     Dates: start: 20120306
  3. GEMZAR [Concomitant]
     Dosage: 1400 MILLIGRAM;
     Route: 042
     Dates: start: 20120307

REACTIONS (3)
  - PRURITUS [None]
  - RENAL PAIN [None]
  - RESPIRATORY FAILURE [None]
